FAERS Safety Report 24746325 (Version 1)
Quarter: 2024Q4

REPORT INFORMATION
  Report Type: Spontaneous
  Country: BH (occurrence: None)
  Receive Date: 20241218
  Receipt Date: 20241218
  Transmission Date: 20250115
  Serious: Yes (Life-Threatening, Hospitalization)
  Sender: ENCUBE ETHICALS
  Company Number: BH-Encube-001452

PATIENT
  Age: 31 Year
  Sex: Male

DRUGS (3)
  1. DICLOFENAC SODIUM [Suspect]
     Active Substance: DICLOFENAC SODIUM
     Indication: Flank pain
     Dosage: (1 MG/KG) STAT DOSE
     Route: 030
  2. AMLODIPINE [Suspect]
     Active Substance: AMLODIPINE BESYLATE
     Indication: Blood pressure measurement
     Dosage: STAT DOSE
  3. CAPTOPRIL [Suspect]
     Active Substance: CAPTOPRIL
     Indication: Blood pressure measurement
     Dosage: STAT DOSE

REACTIONS (2)
  - Anaphylactic shock [Recovered/Resolved]
  - Off label use [Unknown]
